FAERS Safety Report 7402340-0 (Version None)
Quarter: 2011Q2

REPORT INFORMATION
  Report Type: 
  Country: None (occurrence: None)
  Receive Date: 20110408
  Receipt Date: 20110408
  Transmission Date: 20111010
  Serious: Yes (Hospitalization)
  Sender: FDA-Public Use
  Company Number: ES-ROXANE LABORATORIES, INC.-2010-DE-06936GD

PATIENT
  Age: 65 Year
  Sex: Female

DRUGS (4)
  1. ENALAPRIL MALEATE [Suspect]
  2. SERTRALINE HYDROCHLORIDE [Suspect]
  3. CLONAZEPAM [Concomitant]
  4. LEVETIRACETAM [Suspect]
     Indication: NEUROLOGICAL SYMPTOM
     Dosage: 750 MG
     Route: 048

REACTIONS (10)
  - SENSORY DISTURBANCE [None]
  - DISORIENTATION [None]
  - SENSORY LOSS [None]
  - DEPRESSED LEVEL OF CONSCIOUSNESS [None]
  - MAJOR DEPRESSION [None]
  - INAPPROPRIATE ANTIDIURETIC HORMONE SECRETION [None]
  - CONFUSIONAL STATE [None]
  - FALL [None]
  - NEUROLOGICAL SYMPTOM [None]
  - HYPONATRAEMIA [None]
